FAERS Safety Report 8814506 (Version 5)
Quarter: 2012Q4

REPORT INFORMATION
  Report Type: 
  Country: AU (occurrence: AU)
  Receive Date: 20120928
  Receipt Date: 20121128
  Transmission Date: 20130627
  Serious: Yes (Hospitalization, Other)
  Sender: FDA-Public Use
  Company Number: PHHY2012AU084120

PATIENT
  Age: 37 Year
  Sex: Female

DRUGS (15)
  1. CLOZARIL [Suspect]
     Indication: SCHIZOPHRENIA
     Dosage: 275 mg
     Route: 048
     Dates: start: 20120906, end: 20120926
  2. VENLAFAXINE [Concomitant]
  3. GLICLAZIDE [Concomitant]
     Dosage: 120 mg, Mane
     Dates: end: 20120927
  4. RAMIPRIL [Concomitant]
     Dosage: 1.25 mg, Mane
  5. RAMIPRIL [Concomitant]
     Dosage: 2.5 mg, Mane
     Dates: start: 20120927
  6. METFORMIN [Concomitant]
     Dosage: 1 g, TID
  7. METFORMIN [Concomitant]
     Dosage: 2 g, Nocte
     Dates: start: 20120927
  8. PALIPERIDONE [Concomitant]
     Dosage: 100 mg
     Dates: start: 20120627
  9. ATORVASTATIN [Concomitant]
     Dosage: 40 mg, nocte
  10. NICOTINE [Concomitant]
     Dosage: 21/24hr patch mane
  11. INSULIN [Concomitant]
  12. LANTUS [Concomitant]
     Dosage: 22 unit prebed time
  13. ASPIRIN [Concomitant]
     Dosage: 100 mg, Mane
  14. IRON SUPPLEMENTS [Concomitant]
     Dosage: 325 mg, Mane
  15. ACTRAPID HUMAN [Concomitant]
     Dosage: 14 units at breakfast, 12 units at lunch, 12 units at dinner

REACTIONS (19)
  - Mental impairment [Unknown]
  - Troponin increased [Unknown]
  - Tachycardia [Unknown]
  - Left atrial dilatation [Unknown]
  - Diastolic dysfunction [Unknown]
  - Tricuspid valve incompetence [Unknown]
  - Cardiac hypertrophy [Unknown]
  - Left ventricular end-diastolic pressure increased [Unknown]
  - Myocarditis [Unknown]
  - Electrocardiogram abnormal [Unknown]
  - C-reactive protein increased [Unknown]
  - Pyrexia [Unknown]
  - Myalgia [Unknown]
  - Influenza like illness [Unknown]
  - Oropharyngeal pain [Unknown]
  - Blood albumin decreased [Unknown]
  - Blood bicarbonate abnormal [Unknown]
  - Viral infection [Unknown]
  - Headache [Unknown]
